FAERS Safety Report 5481116-8 (Version None)
Quarter: 2007Q4

REPORT INFORMATION
  Report Type: 
  Country: None (occurrence: None)
  Receive Date: 20071003
  Receipt Date: 20070917
  Transmission Date: 20080405
  Serious: Yes (Hospitalization)
  Sender: FDA-Public Use
  Company Number: S07-ITA-03742-01

PATIENT
  Age: 68 Year
  Sex: Female

DRUGS (8)
  1. CITALOPRAM HYDROBROMIDE [Suspect]
     Indication: DEPRESSION
     Dosage: 40 MG QD PO
     Route: 048
     Dates: start: 20070514, end: 20070629
  2. CITALOPRAM HYDROBROMIDE [Concomitant]
     Indication: DEPRESSION
     Dosage: 20 MG QD PO
     Route: 048
     Dates: start: 20070630, end: 20070701
  3. CORAL (NIFEDIPINE) [Concomitant]
  4. IBUSTRIN (INDODUFEN SODIUM) [Concomitant]
  5. DELARPIL/INDAPAMIDE (DELAPRIDE) [Concomitant]
  6. RISPERIDON (RISPERIDONE) [Concomitant]
  7. AKINETON (BIPERIDEN HDYROCHLORIDE) [Concomitant]
  8. ALOPRERIDOL (HALOPERIDOL) [Concomitant]

REACTIONS (14)
  - ABNORMAL BEHAVIOUR [None]
  - BALANCE DISORDER [None]
  - BLOOD CHLORIDE DECREASED [None]
  - BLOOD GLUCOSE INCREASED [None]
  - BLOOD PRESSURE SYSTOLIC INCREASED [None]
  - COMA [None]
  - CONFUSIONAL STATE [None]
  - ELECTROLYTE IMBALANCE [None]
  - FALL [None]
  - HYPOKALAEMIA [None]
  - HYPONATRAEMIA [None]
  - IATROGENIC INJURY [None]
  - REGRESSIVE BEHAVIOUR [None]
  - SERUM FERRITIN INCREASED [None]
